FAERS Safety Report 4746578-X (Version None)
Quarter: 2005Q3

REPORT INFORMATION
  Report Type: 
  Country: None (occurrence: None)
  Receive Date: 20050817
  Receipt Date: 20050525
  Transmission Date: 20060218
  Serious: Yes (Other)
  Sender: FDA-Public Use
  Company Number: JP-BRISTOL-MYERS SQUIBB COMPANY-13007125

PATIENT
  Age: 30 Year
  Sex: Male

DRUGS (16)
  1. EFAVIRENZ [Suspect]
     Indication: HIV INFECTION
     Route: 048
     Dates: start: 20030618
  2. DENOSINE [Suspect]
     Indication: CYTOMEGALOVIRUS VIRAEMIA
     Dosage: 250MGBID25-JUN-03-}14-JUL-03,24-JUL-03-}30-JUL-03,250MG/D 15-JUL-03-}23-JUL-03,31-JUL-03-}01-AUG-03.
     Route: 042
     Dates: start: 20030625, end: 20030801
  3. ZITHROMAX [Concomitant]
     Dates: start: 20030618, end: 20031208
  4. VOLTAREN-XR [Concomitant]
     Dates: start: 20030623, end: 20030627
  5. GLUCOSE + ELECTROLYTES [Concomitant]
     Dates: start: 20030623, end: 20030627
  6. DIFLUCAN [Concomitant]
     Dates: start: 20030618, end: 20030707
  7. EPIVIR [Concomitant]
     Dates: start: 20030618
  8. TAKEPRON [Concomitant]
     Dates: start: 20030618, end: 20040301
  9. MEROPENEM [Concomitant]
     Dates: start: 20030623, end: 20030702
  10. PRIMPERAN INJ [Concomitant]
     Dates: start: 20030618
  11. PENTOBARBITAL CAP [Concomitant]
     Dates: start: 20030618, end: 20030801
  12. PREDONINE [Concomitant]
     Dates: start: 20030624, end: 20030725
  13. ZERIT [Concomitant]
     Dates: start: 20030618
  14. COTRIM [Concomitant]
     Dates: start: 20030624, end: 20031013
  15. VITAMEDIN [Concomitant]
     Dates: start: 20030623, end: 20030627
  16. AMINOFLUID [Concomitant]

REACTIONS (2)
  - NEUTROPENIA [None]
  - WHITE BLOOD CELL COUNT DECREASED [None]
